FAERS Safety Report 12473189 (Version 1)
Quarter: 2016Q2

REPORT INFORMATION
  Report Type: Spontaneous
  Country: US (occurrence: US)
  Receive Date: 20160616
  Receipt Date: 20160616
  Transmission Date: 20160815
  Serious: Yes (Other)
  Sender: FDA-Public Use
  Company Number: US-PFIZER INC-2016297345

PATIENT
  Age: 5 Month
  Sex: Female
  Weight: 3.8 kg

DRUGS (17)
  1. VANCOMYCIN [Concomitant]
     Active Substance: VANCOMYCIN
     Indication: MEDIASTINITIS
     Dosage: UNK
     Route: 042
  2. CHLOROTHIAZIDE. [Concomitant]
     Active Substance: CHLOROTHIAZIDE
     Indication: PULMONARY HYPERTENSION
     Dosage: UNK
     Route: 042
  3. SILDENAFIL. [Concomitant]
     Active Substance: SILDENAFIL
     Indication: PULMONARY OEDEMA
  4. CEFEPIME [Concomitant]
     Active Substance: CEFEPIME HYDROCHLORIDE
     Indication: MEDIASTINITIS
     Dosage: UNK
     Route: 042
  5. EPINEPHRINE. [Concomitant]
     Active Substance: EPINEPHRINE
     Indication: MEDIASTINITIS
     Dosage: UNK
     Route: 042
  6. FUROSEMIDE. [Concomitant]
     Active Substance: FUROSEMIDE
     Indication: PULMONARY HYPERTENSION
     Dosage: UNK
     Route: 042
  7. SILDENAFIL. [Concomitant]
     Active Substance: SILDENAFIL
     Indication: PULMONARY HYPERTENSION
     Dosage: UNK
  8. NITRIC OXIDE. [Concomitant]
     Active Substance: NITRIC OXIDE
     Indication: PULMONARY OEDEMA
  9. POTASSIUM CHLORIDE. [Concomitant]
     Active Substance: POTASSIUM CHLORIDE
     Indication: METABOLIC ALKALOSIS
     Dosage: UNK
  10. SODIUM CHLORIDE. [Concomitant]
     Active Substance: SODIUM CHLORIDE
     Indication: METABOLIC ALKALOSIS
     Dosage: UNK
  11. MILRINONE [Concomitant]
     Active Substance: MILRINONE
     Indication: PULMONARY HYPERTENSION
     Dosage: UNK
  12. FUROSEMIDE. [Concomitant]
     Active Substance: FUROSEMIDE
     Indication: PULMONARY OEDEMA
  13. CHLOROTHIAZIDE. [Concomitant]
     Active Substance: CHLOROTHIAZIDE
     Indication: PULMONARY OEDEMA
  14. NITRIC OXIDE. [Concomitant]
     Active Substance: NITRIC OXIDE
     Indication: PULMONARY HYPERTENSION
     Dosage: UNK
  15. ARGININE HCL [Suspect]
     Active Substance: ARGININE HYDROCHLORIDE
     Indication: METABOLIC ALKALOSIS
     Dosage: 20 MMOL, EVERY 6 HOURS.
     Route: 042
  16. MILRINONE [Concomitant]
     Active Substance: MILRINONE
     Indication: PULMONARY OEDEMA
  17. ACETAZOLAMIDE. [Concomitant]
     Active Substance: ACETAZOLAMIDE
     Indication: METABOLIC ALKALOSIS
     Dosage: UNK

REACTIONS (2)
  - Blood urea increased [Recovered/Resolved]
  - Product use issue [Unknown]
